FAERS Safety Report 6071037-4 (Version None)
Quarter: 2009Q1

REPORT INFORMATION
  Report Type: 
  Country: None (occurrence: None)
  Receive Date: 20090209
  Receipt Date: 20090129
  Transmission Date: 20090719
  Serious: Yes (Other)
  Sender: FDA-Public Use
  Company Number: B0558043A

PATIENT
  Age: 62 Year
  Sex: Female

DRUGS (3)
  1. AMOXICILLIN [Suspect]
     Route: 065
  2. PANTOPRAZOLE [Suspect]
     Route: 065
  3. CLARITHROMYCIN [Suspect]
     Route: 065

REACTIONS (5)
  - ANOREXIA [None]
  - DYSPEPSIA [None]
  - EOSINOPHILIA [None]
  - GASTRIC DISORDER [None]
  - GASTROENTERITIS EOSINOPHILIC [None]
